FAERS Safety Report 8602306-9 (Version None)
Quarter: 2012Q3

REPORT INFORMATION
  Report Type: 
  Country: None (occurrence: None)
  Receive Date: 20120817
  Receipt Date: 20120814
  Transmission Date: 20120928
  Serious: Yes (Other)
  Sender: FDA-Public Use
  Company Number: US-PFIZER INC-2011276944

PATIENT
  Sex: Male

DRUGS (2)
  1. GEODON [Suspect]
     Dosage: UNK
  2. LITHIUM [Suspect]
     Dosage: UNK

REACTIONS (11)
  - BLINDNESS [None]
  - TREMOR [None]
  - NERVOUS SYSTEM DISORDER [None]
  - SCHIZOPHRENIA [None]
  - AMBLYOPIA [None]
  - OVERDOSE [None]
  - DECREASED ACTIVITY [None]
  - WOUND [None]
  - BIPOLAR DISORDER [None]
  - LOSS OF CONSCIOUSNESS [None]
  - MEMORY IMPAIRMENT [None]
